FAERS Safety Report 6500409-6 (Version None)
Quarter: 2009Q4

REPORT INFORMATION
  Report Type: 
  Country: None (occurrence: None)
  Receive Date: 20091216
  Receipt Date: 20091210
  Transmission Date: 20100525
  Serious: Yes (Other)
  Sender: FDA-Public Use
  Company Number: PHHY2009BR24839

PATIENT
  Sex: Female

DRUGS (5)
  1. FORASEQ [Suspect]
  2. FORASEQ [Suspect]
  3. FORASEQ [Suspect]
  4. FORASEQ [Suspect]
  5. FORASEQ [Suspect]

REACTIONS (7)
  - ASTHMA [None]
  - BEDRIDDEN [None]
  - DEVICE MALFUNCTION [None]
  - DYSPNOEA [None]
  - MEDIASTINUM NEOPLASM [None]
  - NERVOUSNESS [None]
  - WHEEZING [None]
